FAERS Safety Report 6366419-7 (Version None)
Quarter: 2009Q3

REPORT INFORMATION
  Report Type: 
  Country: None (occurrence: None)
  Receive Date: 20090915
  Receipt Date: 20090831
  Transmission Date: 20100115
  Serious: Yes (Death, Hospitalization)
  Sender: FDA-Public Use
  Company Number: 8051725

PATIENT
  Age: 15 Year
  Sex: Male

DRUGS (6)
  1. KEPPRA [Suspect]
     Indication: CONVULSION
     Dosage: 2G 2/D PO
     Route: 048
     Dates: start: 20090301, end: 20090602
  2. KEPPRA [Suspect]
     Indication: PROPHYLAXIS
     Dosage: 2G 2/D PO
     Route: 048
     Dates: start: 20090301, end: 20090602
  3. CEFEPINA [Suspect]
     Indication: LUNG INFECTION
     Dosage: 4 G 2/D IV
     Route: 042
     Dates: start: 20090501, end: 20090602
  4. ADALAT [Suspect]
     Indication: HYPERTENSION
     Dosage: 30 MG 1/D PO
     Route: 048
     Dates: start: 20090501, end: 20090602
  5. CANCIDAS [Suspect]
     Indication: LUNG INFECTION
     Dosage: 50 MG 1/D IV
     Route: 042
     Dates: start: 20090501, end: 20090602
  6. SIMULECT [Suspect]
     Indication: ACUTE GRAFT VERSUS HOST DISEASE
     Dosage: 180 MG IV
     Route: 042
     Dates: start: 20090401, end: 20090605

REACTIONS (13)
  - ACUTE GRAFT VERSUS HOST DISEASE [None]
  - BONE MARROW FAILURE [None]
  - COAGULOPATHY [None]
  - DERMATITIS EXFOLIATIVE [None]
  - ERYTHROID MATURATION ARREST [None]
  - GASTROINTESTINAL INJURY [None]
  - HYPOTHERMIA [None]
  - LIVER INJURY [None]
  - MULTI-ORGAN FAILURE [None]
  - RENAL FAILURE [None]
  - RESPIRATORY FAILURE [None]
  - THROMBOCYTOPENIC PURPURA [None]
  - TOXIC EPIDERMAL NECROLYSIS [None]
